FAERS Safety Report 6501748-5 (Version None)
Quarter: 2009Q4

REPORT INFORMATION
  Report Type: 
  Country: None (occurrence: None)
  Receive Date: 20091204
  Receipt Date: 20091130
  Transmission Date: 20100525
  Serious: Yes (Other)
  Sender: FDA-Public Use
  Company Number: A0832528A

PATIENT
  Age: 76 Year
  Sex: Female

DRUGS (3)
  1. ASPIRIN [Suspect]
     Indication: DRUG USE FOR UNKNOWN INDICATION
     Dosage: 325 MG PER DAY ORAL
     Route: 048
  2. CLOPIDOGREL BISULFATE [Suspect]
     Indication: ARTERIAL OCCLUSIVE DISEASE
     Dosage: 75 MG PER DAY ORAL
     Route: 048
     Dates: start: 20091001
  3. OMEPRAZOLE [Concomitant]

REACTIONS (2)
  - CONTUSION [None]
  - HAEMORRHAGE [None]
